FAERS Safety Report 5409442-9 (Version None)
Quarter: 2007Q3

REPORT INFORMATION
  Report Type: 
  Country: None (occurrence: None)
  Receive Date: 20070807
  Receipt Date: 20070807
  Transmission Date: 20080115
  Serious: Yes (Life-Threatening, Hospitalization)
  Sender: FDA-Public Use
  Company Number: None

PATIENT
  Age: 76 Year
  Sex: Male

DRUGS (1)
  1. ERTAPENEM [Suspect]
     Indication: SURGERY
     Dosage: 1GM ONCE IV
     Route: 042
     Dates: start: 20070522, end: 20070522

REACTIONS (2)
  - BRADYCARDIA [None]
  - HYPOTENSION [None]
